FAERS Safety Report 7838064-5 (Version None)
Quarter: 2011Q4

REPORT INFORMATION
  Report Type: 
  Country: None (occurrence: None)
  Receive Date: 20111024
  Receipt Date: 20110228
  Transmission Date: 20120403
  Serious: No
  Sender: FDA-Public Use
  Company Number: US-ABBOTT-11P-163-0708323-00

PATIENT
  Sex: Female

DRUGS (2)
  1. LUPRON DEPOT [Suspect]
     Indication: UTERINE LEIOMYOMA
     Dates: start: 20110101, end: 20110201
  2. LUPRON DEPOT [Suspect]
     Indication: MENORRHAGIA

REACTIONS (3)
  - DRUG INEFFECTIVE [None]
  - UTERINE SPASM [None]
  - MENORRHAGIA [None]
